FAERS Safety Report 5002600-7 (Version None)
Quarter: 2006Q2

REPORT INFORMATION
  Report Type: 
  Country: None (occurrence: None)
  Receive Date: 20060510
  Receipt Date: 20060503
  Transmission Date: 20061013
  Serious: Yes (Other)
  Sender: FDA-Public Use
  Company Number: 2006059748

PATIENT
  Age: 69 Year
  Sex: Female

DRUGS (1)
  1. PHENYTOIN [Suspect]
     Indication: ILL-DEFINED DISORDER

REACTIONS (7)
  - COMA [None]
  - EOSINOPHILIA [None]
  - HEPATIC FUNCTION ABNORMAL [None]
  - JAUNDICE [None]
  - LYMPHADENOPATHY [None]
  - PROTHROMBIN LEVEL DECREASED [None]
  - PYREXIA [None]
